FAERS Safety Report 18869755 (Version 1)
Quarter: 2021Q1

REPORT INFORMATION
  Report Type: Spontaneous
  Country: BE (occurrence: BE)
  Receive Date: 20210209
  Receipt Date: 20210209
  Transmission Date: 20210420
  Serious: Yes (Other)
  Sender: FDA-Public Use
  Company Number: BE-009507513-2102BEL002998

PATIENT
  Age: 67 Year
  Sex: Male

DRUGS (1)
  1. KEYTRUDA [Suspect]
     Active Substance: PEMBROLIZUMAB
     Indication: PROGRESSIVE MULTIFOCAL LEUKOENCEPHALOPATHY
     Dosage: 2 MG/KG, EVERY 4 WEEKS FOR FOUR DOSE

REACTIONS (2)
  - Off label use [Unknown]
  - Immune reconstitution inflammatory syndrome [Recovering/Resolving]
